FAERS Safety Report 6275261-7 (Version None)
Quarter: 2009Q3

REPORT INFORMATION
  Report Type: 
  Country: None (occurrence: None)
  Receive Date: 20090721
  Receipt Date: 20090708
  Transmission Date: 20100115
  Serious: Yes (Hospitalization)
  Sender: FDA-Public Use
  Company Number: A0718981A

PATIENT
  Age: 68 Year
  Sex: Male
  Weight: 113.6 kg

DRUGS (7)
  1. AVANDIA [Suspect]
     Dosage: 4MG TWICE PER DAY
     Route: 065
     Dates: start: 20001018, end: 20061209
  2. AVANDAMET [Suspect]
     Dates: start: 20001018, end: 20061204
  3. AVANDARYL [Suspect]
     Dates: start: 20001018, end: 20061204
  4. GLUCOPHAGE [Concomitant]
     Dates: start: 20000101, end: 20040401
  5. METFORMIN HCL [Concomitant]
     Dates: start: 20040409, end: 20040701
  6. PRANDIN [Concomitant]
     Dates: start: 20030101, end: 20070101
  7. STARLIX [Concomitant]
     Dates: start: 20020327, end: 20030201

REACTIONS (6)
  - ATRIAL FIBRILLATION [None]
  - CARDIAC FAILURE CONGESTIVE [None]
  - ENCEPHALOPATHY [None]
  - MUSCULAR WEAKNESS [None]
  - MYOCARDIAL INFARCTION [None]
  - PNEUMONIA [None]
